FAERS Safety Report 9352600 (Version 2)
Quarter: 2013Q4

REPORT INFORMATION
  Report Type: Report from Study
  Country: CA (occurrence: CA)
  Receive Date: 20130618
  Receipt Date: 20131127
  Transmission Date: 20140711
  Serious: Yes (Death, Other)
  Sender: FDA-Public Use
  Company Number: CA-ROCHE-1235724

PATIENT
  Sex: Male
  Weight: 90.7 kg

DRUGS (4)
  1. XELODA [Suspect]
     Indication: GASTRIC CANCER
     Dosage: DRUG INTERRUPTED
     Route: 048
     Dates: start: 201205, end: 2013
  2. XELODA [Suspect]
     Dosage: DRUG RESTARTED
     Route: 048
  3. DOMPERIDONE [Concomitant]
     Route: 065
  4. MICARDIS [Concomitant]
     Route: 065

REACTIONS (3)
  - Metastases to spine [Fatal]
  - Cardiac disorder [Unknown]
  - Platelet count decreased [Unknown]
